FAERS Safety Report 7863428-3 (Version None)
Quarter: 2011Q4

REPORT INFORMATION
  Report Type: 
  Country: None (occurrence: None)
  Receive Date: 20111027
  Receipt Date: 20101203
  Transmission Date: 20120403
  Serious: No
  Sender: FDA-Public Use
  Company Number: US-AMGEN-TCS410538

PATIENT
  Age: 40 Year
  Sex: Male

DRUGS (2)
  1. ENBREL [Suspect]
     Indication: PSORIATIC ARTHROPATHY
  2. ENBREL [Suspect]
     Indication: ANKYLOSING SPONDYLITIS
     Dosage: 50 MG, QWK
     Route: 058
     Dates: start: 20100225

REACTIONS (5)
  - THERAPEUTIC RESPONSE DECREASED [None]
  - MUSCLE SPASMS [None]
  - ANKYLOSING SPONDYLITIS [None]
  - MUSCULOSKELETAL DISCOMFORT [None]
  - CHEST DISCOMFORT [None]
